FAERS Safety Report 5377759-2 (Version None)
Quarter: 2007Q3

REPORT INFORMATION
  Report Type: 
  Country: None (occurrence: None)
  Receive Date: 20070703
  Receipt Date: 20070621
  Transmission Date: 20080115
  Serious: Yes (Hospitalization)
  Sender: FDA-Public Use
  Company Number: FR-PFIZER INC-2007051694

PATIENT
  Sex: Male

DRUGS (17)
  1. CHAMPIX [Suspect]
  2. ALCOHOL [Suspect]
  3. PLAVIX [Concomitant]
  4. GLICLAZIDE [Concomitant]
  5. EUPRESSYL [Concomitant]
  6. TENSTATEN [Concomitant]
  7. COZAAR [Concomitant]
  8. METFORMIN [Concomitant]
  9. NAFTIDROFURYL [Concomitant]
  10. PRAVASTATIN [Concomitant]
  11. ALLOPURINOL [Concomitant]
  12. PREGABALIN [Concomitant]
  13. ZOLPIDEM TARTRATE [Concomitant]
  14. BROMAZEPAM [Concomitant]
  15. ESOMEPRAZOLE MAGNESIUM [Concomitant]
  16. ATHYMIL [Concomitant]
  17. LOPERAMIDE HCL [Concomitant]

REACTIONS (3)
  - HEPATIC CIRRHOSIS [None]
  - HEPATITIS [None]
  - JAUNDICE [None]
